FAERS Safety Report 17521848 (Version 1)
Quarter: 2020Q1

REPORT INFORMATION
  Report Type: Report from Study
  Country: ZA (occurrence: ZA)
  Receive Date: 20200310
  Receipt Date: 20200310
  Transmission Date: 20200409
  Serious: Yes (Hospitalization)
  Sender: FDA-Public Use
  Company Number: NVSC2020ZA064848

PATIENT
  Sex: Male

DRUGS (1)
  1. BISOPROLOL [Suspect]
     Active Substance: BISOPROLOL
     Indication: MYOCARDIAL INFARCTION
     Dosage: 2.5 MG, QD
     Route: 048

REACTIONS (5)
  - Hepatomegaly [Unknown]
  - Fatigue [Unknown]
  - Venous pressure jugular increased [Unknown]
  - Dyspnoea exertional [Unknown]
  - Myocardial infarction [Not Recovered/Not Resolved]
